FAERS Safety Report 6938048-5 (Version None)
Quarter: 2010Q3

REPORT INFORMATION
  Report Type: 
  Country: None (occurrence: None)
  Receive Date: 20100823
  Receipt Date: 20100823
  Transmission Date: 20110219
  Serious: Yes (Hospitalization)
  Sender: FDA-Public Use
  Company Number: None

PATIENT
  Sex: Male
  Weight: 90 kg

DRUGS (3)
  1. CISPLATIN [Suspect]
     Dosage: 117 MG
     Dates: end: 20100701
  2. TAXOTERE [Suspect]
     Dosage: 160 MG
     Dates: end: 20100701
  3. PREDNISONE [Concomitant]

REACTIONS (3)
  - CARDIAC FAILURE CONGESTIVE [None]
  - PULMONARY FIBROSIS [None]
  - TRAUMATIC LUNG INJURY [None]
